FAERS Safety Report 5253181-4 (Version None)
Quarter: 2007Q1

REPORT INFORMATION
  Report Type: 
  Country: None (occurrence: None)
  Receive Date: 20070301
  Receipt Date: 20070219
  Transmission Date: 20070707
  Serious: Yes (Hospitalization, Other)
  Sender: FDA-Public Use
  Company Number: PHEH2007US02292

PATIENT
  Age: 57 Year
  Sex: Female
  Weight: 56.689 kg

DRUGS (8)
  1. ESTRADERM [Suspect]
     Indication: HORMONE REPLACEMENT THERAPY
     Dosage: 0.05 MG PATCH
     Dates: start: 19930914, end: 19940808
  2. PREMARIN [Suspect]
     Indication: HORMONE REPLACEMENT THERAPY
     Dosage: 0.3-0.625MG
     Route: 048
     Dates: start: 19890606, end: 19930812
  3. PROVERA [Suspect]
     Indication: HORMONE REPLACEMENT THERAPY
     Dosage: 2.5-10MG
     Route: 048
     Dates: start: 19890606, end: 19940914
  4. ESTRACE [Suspect]
     Indication: HORMONE REPLACEMENT THERAPY
     Dates: start: 19930812, end: 19930914
  5. MAXZIDE [Concomitant]
     Indication: HYPERTENSION
     Dates: start: 19900101
  6. ATENOLOL [Concomitant]
     Indication: HYPERTENSION
     Dates: start: 19900101
  7. NORETHINDRONE [Concomitant]
     Indication: CONTRACEPTION
     Dates: start: 19940801, end: 19940801
  8. TAMOXIFEN CITRATE [Concomitant]
     Indication: BREAST CANCER
     Dates: start: 19960101, end: 20010101

REACTIONS (17)
  - ANGINA PECTORIS [None]
  - BACK PAIN [None]
  - BREAST CANCER [None]
  - CATHETERISATION CARDIAC [None]
  - CERVICAL CONISATION [None]
  - GASTROOESOPHAGEAL REFLUX DISEASE [None]
  - INTERVERTEBRAL DISC DISORDER [None]
  - LUMBAR RADICULOPATHY [None]
  - MASTECTOMY [None]
  - MUSCULOSKELETAL PAIN [None]
  - OSTEOPOROSIS [None]
  - PAIN IN EXTREMITY [None]
  - PALPITATIONS [None]
  - RADIOTHERAPY [None]
  - SMEAR CERVIX ABNORMAL [None]
  - SPINAL OSTEOARTHRITIS [None]
  - TACHYCARDIA [None]
